FAERS Safety Report 9979262 (Version 1)
Quarter: 2014Q1

REPORT INFORMATION
  Report Type: Report from Study
  Country: US (occurrence: US)
  Receive Date: 20140306
  Receipt Date: 20140306
  Transmission Date: 20141002
  Serious: No
  Sender: FDA-Public Use
  Company Number: US-ABBVIE-13P-163-1170070-00

PATIENT
  Age: 41 Year
  Sex: Female

DRUGS (4)
  1. HUMIRA [Suspect]
     Indication: CROHN^S DISEASE
     Dates: start: 20130930, end: 20131028
  2. OMEPRAZOLE [Concomitant]
     Indication: GASTROOESOPHAGEAL REFLUX DISEASE
     Route: 048
  3. PROZAC [Concomitant]
     Indication: ANXIETY
     Route: 048
  4. PREDNISONE [Concomitant]
     Indication: PRODUCT USED FOR UNKNOWN INDICATION
     Dosage: COMPLETED TAPER
     Dates: end: 20131031

REACTIONS (7)
  - Fatigue [Unknown]
  - Rash [Unknown]
  - Rash pruritic [Unknown]
  - Alopecia [Unknown]
  - Hypersomnia [Unknown]
  - Vitamin B12 deficiency [Unknown]
  - Iron deficiency [Unknown]
